FAERS Safety Report 4304858-6 (Version None)
Quarter: 2004Q1

REPORT INFORMATION
  Report Type: 
  Country: None (occurrence: None)
  Receive Date: 20040226
  Receipt Date: 20031229
  Transmission Date: 20041129
  Serious: No
  Sender: FDA-Public Use
  Company Number: US-GLAXOSMITHKLINE-A0490787A

PATIENT
  Age: 35 Year
  Sex: Female
  Weight: 77.3 kg

DRUGS (4)
  1. WELLBUTRIN XL [Suspect]
     Indication: DEPRESSION
     Dosage: 300MG PER DAY
     Route: 048
     Dates: start: 20030717
  2. TRILEPTAL [Concomitant]
     Indication: BIPOLAR II DISORDER
     Dosage: 600MG AT NIGHT
     Route: 048
     Dates: start: 20030214
  3. AMBIEN [Concomitant]
     Indication: SLEEP DISORDER
     Dosage: 10MG AT NIGHT
     Route: 048
     Dates: start: 20030205
  4. VITAMIN COMPLEX [Concomitant]
     Route: 048
     Dates: start: 20030905

REACTIONS (1)
  - EPISTAXIS [None]
